FAERS Safety Report 24046852 (Version 8)
Quarter: 2025Q2

REPORT INFORMATION
  Report Type: Report from Study
  Country: US (occurrence: US)
  Receive Date: 20240703
  Receipt Date: 20250509
  Transmission Date: 20250717
  Serious: Yes (Other)
  Sender: OTSUKA
  Company Number: US-OTSUKA-2024_002760

PATIENT
  Age: 44 Year
  Sex: Female

DRUGS (5)
  1. TOLVAPTAN [Suspect]
     Active Substance: TOLVAPTAN
     Indication: Congenital cystic kidney disease
     Route: 065
     Dates: start: 20240530
  2. TOLVAPTAN [Suspect]
     Active Substance: TOLVAPTAN
     Route: 065
     Dates: start: 20240113
  3. TOLVAPTAN [Suspect]
     Active Substance: TOLVAPTAN
     Route: 065
     Dates: start: 20231114
  4. TOLVAPTAN [Suspect]
     Active Substance: TOLVAPTAN
     Route: 065
  5. TOLVAPTAN [Suspect]
     Active Substance: TOLVAPTAN
     Route: 065

REACTIONS (16)
  - Rheumatoid arthritis [Unknown]
  - Systemic lupus erythematosus [Unknown]
  - Peripheral swelling [Unknown]
  - Anion gap increased [Unknown]
  - C-reactive protein increased [Unknown]
  - Nasopharyngitis [Unknown]
  - Joint swelling [Unknown]
  - White blood cell count increased [Unknown]
  - Blood creatinine increased [Unknown]
  - Weight decreased [Unknown]
  - Arthralgia [Unknown]
  - Dyspepsia [Unknown]
  - Liver function test increased [Unknown]
  - Thirst [Unknown]
  - Polyuria [Unknown]
  - Product dose omission issue [Recovered/Resolved]

NARRATIVE: CASE EVENT DATE: 20240131
